FAERS Safety Report 6402031-9 (Version None)
Quarter: 2009Q4

REPORT INFORMATION
  Report Type: 
  Country: None (occurrence: None)
  Receive Date: 20091013
  Receipt Date: 20090928
  Transmission Date: 20100525
  Serious: Yes (Hospitalization, Other)
  Sender: FDA-Public Use
  Company Number: 20090431

PATIENT
  Age: 44 Year
  Sex: Female
  Weight: 47.6277 kg

DRUGS (8)
  1. VENOFER [Suspect]
     Indication: IRON DEFICIENCY ANAEMIA
     Dates: start: 20090801
  2. CITALOPRAM HYDROBROMIDE [Suspect]
     Indication: DEPRESSION
     Dates: start: 20090910, end: 20090915
  3. DEXAMETHASONE [Suspect]
     Indication: PREMEDICATION
     Dosage: 2 MG IV PIGGYBACK
     Route: 042
     Dates: start: 20090801, end: 20090801
  4. FERRLECIT [Suspect]
     Indication: IRON DEFICIENCY ANAEMIA
     Dosage: 250 MG/ NS OVER 2
     Dates: start: 20090706, end: 20090706
  5. FERRLECIT [Suspect]
     Indication: IRON DEFICIENCY ANAEMIA
     Dosage: 250 MG IN NS OVER 2
     Dates: start: 20090511, end: 20090511
  6. FERRLECIT [Suspect]
     Indication: IRON DEFICIENCY ANAEMIA
     Dosage: 125 MG/WEEK FOR 4 WKS
     Dates: start: 20090501, end: 20090601
  7. SOLU-CORTEF [Suspect]
     Indication: PREMEDICATION
     Dosage: 100 MG INTRAVENOUS
     Route: 042
     Dates: start: 20090501, end: 20090701
  8. PRILOSEC(AMEPRAZOLE) [Concomitant]

REACTIONS (26)
  - ABDOMINAL PAIN [None]
  - AGITATION [None]
  - BACK PAIN [None]
  - CONFUSIONAL STATE [None]
  - CONVULSION [None]
  - DECREASED APPETITE [None]
  - DIARRHOEA [None]
  - DISORIENTATION [None]
  - DIZZINESS [None]
  - DRY MOUTH [None]
  - DYSGEUSIA [None]
  - DYSPNOEA [None]
  - HYPOAESTHESIA [None]
  - HYPOKALAEMIA [None]
  - HYPOTENSION [None]
  - HYPOTONIA [None]
  - INSOMNIA [None]
  - LOGORRHOEA [None]
  - LOSS OF CONSCIOUSNESS [None]
  - NAUSEA [None]
  - NERVOUSNESS [None]
  - PSYCHOMOTOR HYPERACTIVITY [None]
  - RECTAL HAEMORRHAGE [None]
  - VISION BLURRED [None]
  - VOMITING [None]
  - WEIGHT DECREASED [None]
